FAERS Safety Report 7504270-2 (Version None)
Quarter: 2011Q2

REPORT INFORMATION
  Report Type: 
  Country: None (occurrence: None)
  Receive Date: 20110525
  Receipt Date: 20110523
  Transmission Date: 20111010
  Serious: Yes (Hospitalization, Disabling, Other)
  Sender: FDA-Public Use
  Company Number: FR-ABBOTT-10P-056-0654660-00

PATIENT
  Sex: Female

DRUGS (7)
  1. EDUCTYL [Concomitant]
     Indication: CONSTIPATION
  2. TRIPHASIL-21 [Concomitant]
  3. PAROXETINE HCL [Concomitant]
     Indication: PRODUCT USED FOR UNKNOWN INDICATION
     Dosage: 0.5 DOSAGE FORMS DAILY
     Route: 048
  4. HUMIRA [Suspect]
     Indication: PSORIASIS
     Route: 058
     Dates: start: 20091001, end: 20091201
  5. DAPHALGAN [Concomitant]
     Indication: PRODUCT USED FOR UNKNOWN INDICATION
  6. TRIPHASIL-21 [Suspect]
     Indication: ORAL CONTRACEPTION
     Route: 048
  7. DERMOVAL [Concomitant]
     Indication: PSORIASIS
     Route: 061

REACTIONS (11)
  - URINARY RETENTION [None]
  - DIPLEGIA [None]
  - SPINAL CORD INFARCTION [None]
  - PERIPHERAL MOTOR NEUROPATHY [None]
  - BONE MARROW ISCHAEMIA [None]
  - BACK PAIN [None]
  - PERIPHERAL SENSORIMOTOR NEUROPATHY [None]
  - BONE INFARCTION [None]
  - QUADRIPARESIS [None]
  - PARAPLEGIA [None]
  - PARESIS [None]
